FAERS Safety Report 5532079-8 (Version None)
Quarter: 2007Q4

REPORT INFORMATION
  Report Type: 
  Country: None (occurrence: None)
  Receive Date: 20071203
  Receipt Date: 20071122
  Transmission Date: 20080405
  Serious: Yes (Hospitalization)
  Sender: FDA-Public Use
  Company Number: B0497612A

PATIENT
  Age: 79 Year
  Sex: Female

DRUGS (15)
  1. DEROXAT [Suspect]
     Indication: DRUG USE FOR UNKNOWN INDICATION
     Route: 048
     Dates: end: 20070924
  2. DANATROL [Suspect]
     Indication: DRUG USE FOR UNKNOWN INDICATION
     Route: 048
     Dates: start: 20050414, end: 20070923
  3. DIANTALVIC [Suspect]
     Indication: DRUG USE FOR UNKNOWN INDICATION
     Route: 048
     Dates: start: 20070101, end: 20070923
  4. LAROXYL [Suspect]
     Indication: DRUG USE FOR UNKNOWN INDICATION
     Route: 048
     Dates: start: 20070101, end: 20070923
  5. AMARYL [Suspect]
     Indication: DRUG USE FOR UNKNOWN INDICATION
     Route: 048
     Dates: start: 20060915, end: 20070924
  6. INIPOMP [Suspect]
     Indication: DRUG USE FOR UNKNOWN INDICATION
     Dates: start: 20070101, end: 20070924
  7. ZOLPIDEM TARTRATE [Suspect]
     Indication: DRUG USE FOR UNKNOWN INDICATION
     Route: 048
     Dates: start: 20061001, end: 20070924
  8. DIFFU K [Suspect]
     Indication: DRUG USE FOR UNKNOWN INDICATION
     Route: 048
     Dates: start: 20070101, end: 20070923
  9. MONOTILDIEM [Suspect]
     Route: 048
     Dates: start: 20060915, end: 20070923
  10. NITRODERM [Concomitant]
  11. LEVOTHYROX [Concomitant]
     Indication: HYPOTHYROIDISM
  12. OGAST [Concomitant]
  13. LOVENOX [Concomitant]
     Dates: start: 20061001, end: 20070901
  14. ACARBOSE [Concomitant]
     Dates: start: 20070101, end: 20070924
  15. FORLAX [Concomitant]
     Dates: start: 20070101

REACTIONS (5)
  - ABDOMINAL PAIN [None]
  - CALCULUS BLADDER [None]
  - CHOLESTASIS [None]
  - JAUNDICE [None]
  - PANCREATIC DISORDER [None]
